FAERS Safety Report 16289587 (Version 1)
Quarter: 2019Q2

REPORT INFORMATION
  Report Type: Spontaneous
  Country: BR (occurrence: BR)
  Receive Date: 20190509
  Receipt Date: 20190509
  Transmission Date: 20190711
  Serious: Yes (Other)
  Sender: FDA-Public Use
  Company Number: BR-SA-2018SA334788

PATIENT
  Age: 51 Year
  Sex: Male
  Weight: 120 kg

DRUGS (2)
  1. FABRAZYME [Suspect]
     Active Substance: AGALSIDASE BETA
     Indication: FABRY^S DISEASE
     Dosage: 5 VIALS PER MONTH (ONE OF 2 VIALS AND OTHER OF 3 VIALS), QOW
     Route: 041
     Dates: start: 2015
  2. FABRAZYME [Suspect]
     Active Substance: AGALSIDASE BETA
     Dosage: 5 VIALS PER MONTH (ONE OF 2 VIALS AND OTHER OF 3 VIALS), QOW
     Route: 041

REACTIONS (5)
  - Dyspnoea [Recovered/Resolved]
  - Erysipelas [Recovered/Resolved]
  - Cardiovascular disorder [Recovered/Resolved]
  - Hypersensitivity [Recovered/Resolved]
  - Rash [Recovered/Resolved]

NARRATIVE: CASE EVENT DATE: 201802
